FAERS Safety Report 10379037 (Version 4)
Quarter: 2015Q2

REPORT INFORMATION
  Report Type: Spontaneous
  Country: US (occurrence: US)
  Receive Date: 20140812
  Receipt Date: 20150427
  Transmission Date: 20150821
  Serious: Yes (Death, Hospitalization, Other)
  Sender: FDA-Public Use
  Company Number: US-009507513-1408USA005705

PATIENT
  Sex: Female
  Weight: 110.66 kg

DRUGS (1)
  1. JANUVIA [Suspect]
     Active Substance: SITAGLIPTIN PHOSPHATE
     Indication: TYPE 2 DIABETES MELLITUS
     Dosage: 100 MG, DAILY
     Route: 048
     Dates: start: 20071212, end: 20090321

REACTIONS (12)
  - Mastoidectomy [Unknown]
  - Surgery [Unknown]
  - Staphylococcal infection [Unknown]
  - Type 1 diabetes mellitus [Unknown]
  - Pancreatic carcinoma [Fatal]
  - Nephropathy [Unknown]
  - Dehydration [Fatal]
  - Vaginal haemorrhage [Unknown]
  - Stent placement [Unknown]
  - Renal failure [Fatal]
  - Head injury [Unknown]
  - Headache [Unknown]

NARRATIVE: CASE EVENT DATE: 20100430
